FAERS Safety Report 4520370-3 (Version None)
Quarter: 2004Q4

REPORT INFORMATION
  Report Type: 
  Country: None (occurrence: None)
  Receive Date: 20041203
  Receipt Date: 20041122
  Transmission Date: 20050328
  Serious: No
  Sender: FDA-Public Use
  Company Number: 2004242130FR

PATIENT
  Age: 82 Year
  Sex: Female
  Weight: 73 kg

DRUGS (4)
  1. LOMEFLOXACIN HYDROCHLORIDE TABLET (LOMEFLOXACIN HYDROCHLORIDE) [Suspect]
     Indication: URINARY TRACT INFECTION
  2. AMIODARONE (AMIODARONE) [Suspect]
     Indication: ATRIAL FLUTTER
     Dosage: ORAL
     Route: 048
     Dates: start: 20041007
  3. AMIODARONE (AMIODARONE) [Suspect]
     Indication: EXTRASYSTOLES
     Dosage: ORAL
     Route: 048
     Dates: start: 20041007
  4. COLECALCIFEROL (COLECALCIFEROL) [Concomitant]

REACTIONS (3)
  - DRUG INTERACTION [None]
  - EXTRASYSTOLES [None]
  - NERVOUSNESS [None]
